FAERS Safety Report 24061342 (Version 2)
Quarter: 2024Q3

REPORT INFORMATION
  Report Type: Spontaneous
  Country: GB (occurrence: GB)
  Receive Date: 20240708
  Receipt Date: 20240808
  Transmission Date: 20241017
  Serious: Yes (Other)
  Sender: MYLAN
  Company Number: None

PATIENT
  Age: 45 Year
  Sex: Female
  Weight: 91 kg

DRUGS (3)
  1. SERTRALINE [Suspect]
     Active Substance: SERTRALINE HYDROCHLORIDE
     Indication: Anxiety
     Dosage: 25 MILLIGRAM, AM (25 MG IN MORNING)
     Route: 065
     Dates: start: 20240510
  2. SERTRALINE [Suspect]
     Active Substance: SERTRALINE HYDROCHLORIDE
     Dosage: 12.5 GRAM
     Route: 065
  3. SERTRALINE [Suspect]
     Active Substance: SERTRALINE HYDROCHLORIDE
     Dosage: 12.5 MILLIGRAM (2 DAYS AT 12.5G DOSE, 2 DAYS 25G DOSE (AS REPORTED FROM NARRATIVE)
     Route: 065
     Dates: start: 20240510

REACTIONS (1)
  - Formication [Not Recovered/Not Resolved]

NARRATIVE: CASE EVENT DATE: 20240513
